FAERS Safety Report 9324472 (Version 1)
Quarter: 2013Q2

REPORT INFORMATION
  Report Type: Spontaneous
  Country: US (occurrence: None)
  Receive Date: 20130531
  Receipt Date: 20130531
  Transmission Date: 20140414
  Serious: No
  Sender: FDA-Public Use
  Company Number: None

PATIENT
  Age: 17 Year
  Sex: Male
  Weight: 63.2 kg

DRUGS (1)
  1. HUMATE-P [Suspect]
     Dosage: 3600 UNITS ONCE IV
     Dates: start: 20130519, end: 20130519

REACTIONS (3)
  - Dysphagia [None]
  - Erythema [None]
  - Pruritus [None]
